FAERS Safety Report 5748226-9 (Version None)
Quarter: 2008Q2

REPORT INFORMATION
  Report Type: 
  Country: None (occurrence: None)
  Receive Date: 20080523
  Receipt Date: 20080516
  Transmission Date: 20081010
  Serious: Yes (Other)
  Sender: FDA-Public Use
  Company Number: US-PFIZER INC-2006124564

PATIENT
  Sex: Female
  Weight: 99 kg

DRUGS (1)
  1. LIPITOR [Suspect]
     Dosage: DAILY DOSE:10MG
     Dates: start: 20030101, end: 20060501

REACTIONS (10)
  - AMNESIA [None]
  - BALANCE DISORDER [None]
  - COGNITIVE DISORDER [None]
  - DEPRESSION [None]
  - DISORIENTATION [None]
  - FATIGUE [None]
  - GAIT DISTURBANCE [None]
  - IRRITABILITY [None]
  - MYOPATHY [None]
  - NEUROPATHY PERIPHERAL [None]
